FAERS Safety Report 6642185-2 (Version None)
Quarter: 2010Q1

REPORT INFORMATION
  Report Type: 
  Country: None (occurrence: None)
  Receive Date: 20100319
  Receipt Date: 20100310
  Transmission Date: 20100710
  Serious: Yes (Death, Life-Threatening)
  Sender: FDA-Public Use
  Company Number: DE-PFIZER INC-2010030766

PATIENT
  Age: 43 Year
  Sex: Male

DRUGS (29)
  1. FRAGMIN [Suspect]
     Indication: THROMBOSIS PROPHYLAXIS
     Dosage: 0.2 ML, 1X/DAY
     Route: 058
     Dates: start: 20090221, end: 20090306
  2. MIDAZOLAM HCL [Suspect]
     Indication: DELIRIUM
     Dosage: 5 MG, UNK
     Route: 042
     Dates: start: 20090220, end: 20090220
  3. ASPISOL [Suspect]
     Indication: THROMBOSIS PROPHYLAXIS
     Dosage: 250 MG, UNK
     Route: 042
     Dates: start: 20090221, end: 20090225
  4. ZOVIRAX [Suspect]
     Indication: ENCEPHALITIS HERPES
     Dosage: 750 MG, 3X/DAY
     Route: 042
     Dates: start: 20090221, end: 20090225
  5. FORTUM [Suspect]
     Indication: SEPSIS
     Dosage: 2 G, 3X/DAY
     Route: 042
     Dates: start: 20090221, end: 20090226
  6. VITAMIN B1 TAB [Suspect]
     Indication: VITAMIN SUPPLEMENTATION
     Dosage: 100 MG, 1X/DAY
     Route: 042
     Dates: start: 20090221, end: 20090228
  7. HALDOL [Suspect]
     Indication: HALLUCINATION
     Dosage: 5 MG, 3X/DAY
     Route: 042
     Dates: start: 20090221, end: 20090222
  8. HALDOL [Suspect]
     Dosage: 5 MG, 2X/DAY
     Dates: start: 20090224, end: 20090302
  9. HALDOL [Suspect]
     Dosage: 5 MG, 3X/DAY
     Route: 048
     Dates: start: 20090302, end: 20090306
  10. PARACETAMOL [Suspect]
     Indication: PYREXIA
     Dosage: UNK
     Route: 048
     Dates: start: 20090221, end: 20090306
  11. AMINOVEN [Suspect]
     Indication: SUPPLEMENTATION THERAPY
     Dosage: UNK
     Route: 042
     Dates: start: 20090221, end: 20090306
  12. INSUMAN RAPID [Suspect]
     Indication: HYPERGLYCAEMIA
     Dosage: UNK
     Route: 042
     Dates: start: 20090221, end: 20090308
  13. VANCOMYCIN [Suspect]
     Indication: EAR INFECTION
     Dosage: 1 G, 2X/DAY
     Route: 042
     Dates: start: 20090221, end: 20090301
  14. TAVOR [Suspect]
     Indication: HALLUCINATION
     Dosage: 1 MG, 3X/DAY
     Route: 042
     Dates: start: 20090221
  15. TAVOR [Suspect]
     Dosage: 0.5 MG, 3X/DAY
  16. NEXIUM [Suspect]
     Indication: PROPHYLAXIS AGAINST GASTROINTESTINAL ULCER
     Dosage: 40 MG, 1X/DAY
     Route: 042
     Dates: start: 20090222
  17. NEXIUM [Suspect]
     Dosage: 20 MG, 1X/DAY
     Route: 042
  18. LAVASEPT [Suspect]
     Indication: ACNE
     Dosage: UNK
     Route: 061
     Dates: start: 20090223, end: 20090225
  19. ADVANTAN [Suspect]
     Indication: ACNE
     Dosage: UNK
     Route: 061
     Dates: start: 20090225, end: 20090227
  20. LEDERFOLAT [Suspect]
     Indication: SUPPLEMENTATION THERAPY
     Dosage: 15 MG, 1X/DAY
     Route: 048
     Dates: start: 20090225, end: 20090306
  21. SULFADIAZINE [Suspect]
     Indication: TOXOPLASMOSIS
     Dosage: 1.5 G, 3X/DAY
     Route: 042
     Dates: start: 20090225, end: 20090306
  22. NIZORAL [Suspect]
     Indication: ACNE
     Dosage: UNK
     Route: 061
     Dates: start: 20090225, end: 20090306
  23. DARAPRIM [Suspect]
     Indication: TOXOPLASMOSIS
     Dosage: 25 MG, 2X/DAY
     Route: 048
     Dates: start: 20090225
  24. TAZOBAC [Suspect]
     Indication: SEPSIS
     Dosage: 4.5 MG, 3X/DAY
     Route: 042
     Dates: start: 20090226, end: 20090306
  25. CILOXAN [Suspect]
     Indication: EAR INFECTION
     Dosage: UNK
     Route: 001
     Dates: start: 20090227, end: 20090306
  26. LAVASEPT [Suspect]
     Indication: EAR INFECTION
     Dosage: UNK
     Route: 001
     Dates: start: 20090227, end: 20090306
  27. KONAKION [Suspect]
     Indication: SUPPLEMENTATION THERAPY
     Dosage: 1 DF, UNK
     Route: 042
     Dates: start: 20090228, end: 20090305
  28. BETABION [Suspect]
     Indication: SUPPLEMENTATION THERAPY
     Dosage: 100 MG, UNK
     Route: 048
     Dates: start: 20090228, end: 20090306
  29. TAVANIC [Suspect]
     Indication: SEPSIS
     Dosage: 500 MG, 2X/DAY
     Route: 042
     Dates: start: 20090301, end: 20090306

REACTIONS (2)
  - STEVENS-JOHNSON SYNDROME [None]
  - TOXIC EPIDERMAL NECROLYSIS [None]
